FAERS Safety Report 24457471 (Version 1)
Quarter: 2024Q4

REPORT INFORMATION
  Report Type: Spontaneous
  Country: NO (occurrence: NO)
  Receive Date: 20241018
  Receipt Date: 20241018
  Transmission Date: 20250115
  Serious: Yes (Other)
  Sender: ABBVIE
  Company Number: NO-INCYTE CORPORATION-2024IN008439

PATIENT
  Sex: Female

DRUGS (3)
  1. DEXAMETHASONE [Suspect]
     Active Substance: DEXAMETHASONE
     Indication: Product used for unknown indication
     Dosage: TIME INTERVAL: AS NECESSARY
     Route: 050
  2. PEMAZYRE [Suspect]
     Active Substance: PEMIGATINIB
     Indication: Cholangiocarcinoma
     Dosage: 13.5 MILLIGRAM, ONCE A DAY FOR 14 DAYS?LAST ADMIN DATE WAS 2024
     Route: 048
     Dates: start: 20240806
  3. PEMAZYRE [Suspect]
     Active Substance: PEMIGATINIB
     Indication: Cholangiocarcinoma
     Dosage: 13.5 MILLIGRAM, ONCE A DAY FOR 14 DAYS?END DATE 2024
     Route: 048
     Dates: start: 20240202

REACTIONS (4)
  - Spinal compression fracture [Unknown]
  - Disease progression [Unknown]
  - Osteoporosis [Unknown]
  - Spinal pain [Unknown]

NARRATIVE: CASE EVENT DATE: 20240101
